FAERS Safety Report 4917878-5 (Version None)
Quarter: 2006Q1

REPORT INFORMATION
  Report Type: 
  Country: None (occurrence: None)
  Receive Date: 20060221
  Receipt Date: 20060208
  Transmission Date: 20060701
  Serious: Yes (Hospitalization)
  Sender: FDA-Public Use
  Company Number: US-AMGEN-US168065

PATIENT
  Sex: Female

DRUGS (10)
  1. ARANESP [Suspect]
     Indication: RENAL FAILURE CHRONIC
     Route: 058
     Dates: start: 20021101
  2. CLONIDINE [Concomitant]
  3. PROTONIX [Concomitant]
  4. LORAZEPAM [Concomitant]
  5. DILTIAZEM HCL [Concomitant]
  6. LASIX [Concomitant]
  7. MECLIZINE [Concomitant]
  8. TYLENOL [Concomitant]
  9. CALCIUM GLUCONATE [Concomitant]
  10. VITAMIN D [Concomitant]

REACTIONS (4)
  - DYSPNOEA [None]
  - DYSPNOEA EXERTIONAL [None]
  - HAEMOGLOBIN DECREASED [None]
  - OEDEMA PERIPHERAL [None]
